FAERS Safety Report 14546640 (Version 1)
Quarter: 2018Q1

REPORT INFORMATION
  Report Type: Spontaneous
  Country: US (occurrence: US)
  Receive Date: 20180219
  Receipt Date: 20180219
  Transmission Date: 20180509
  Serious: No
  Sender: FDA-Public Use
  Company Number: US-JNJFOC-20180113813

PATIENT
  Sex: Male
  Weight: 79.83 kg

DRUGS (1)
  1. DURAGESIC [Suspect]
     Active Substance: FENTANYL
     Indication: PAIN MANAGEMENT
     Route: 062
     Dates: start: 2012

REACTIONS (3)
  - Drug dose omission [Unknown]
  - Hypogonadism [Unknown]
  - Product administered at inappropriate site [Unknown]
